FAERS Safety Report 12084183 (Version 1)
Quarter: 2016Q1

REPORT INFORMATION
  Report Type: Spontaneous
  Country: NL (occurrence: NL)
  Receive Date: 20160217
  Receipt Date: 20160217
  Transmission Date: 20160526
  Serious: Yes (Hospitalization)
  Sender: FDA-Public Use
  Company Number: NL-TEVA-634606ACC

PATIENT
  Age: 58 Year
  Sex: Female

DRUGS (4)
  1. PACLITAXEL INFUUS [Suspect]
     Active Substance: PACLITAXEL
     Indication: BREAST CANCER
     Dosage: 80 MG/M2 = 143 MG
     Route: 042
     Dates: start: 20151007
  2. NAPROXEN TABLET 500MG [Concomitant]
     Active Substance: NAPROXEN
     Dosage: 500 MILLIGRAM DAILY; DAILY DOSE: 500 MILLIGRAM, 1 KEER PER DAG 1 STUK(S)
     Route: 048
     Dates: start: 2014, end: 201601
  3. ALENCA D3 70MG/ 500MG/800IE(1T ALENDRONZ+6T CALCI) [Concomitant]
     Dosage: 1 DOSAGE FORMS DAILY; DAILY DOSE: 1 DOSAGE FORM, 1 KEER PER DAG 1 STUK(S)
     Route: 048
     Dates: start: 2014, end: 201602
  4. OMEPRAZOL CAPSULE MSR 40MG [Concomitant]
     Active Substance: OMEPRAZOLE
     Dosage: 40 MILLIGRAM DAILY; DAILY DOSE: 40 MILLIGRAM, ONCE DAILY ONE PIECE
     Route: 048
     Dates: start: 2015, end: 201601

REACTIONS (2)
  - Pneumonia [Recovering/Resolving]
  - Pneumonitis [Recovering/Resolving]

NARRATIVE: CASE EVENT DATE: 20151117
